FAERS Safety Report 9330584 (Version 3)
Quarter: 2013Q3

REPORT INFORMATION
  Report Type: Report from Study
  Country: DE (occurrence: DE)
  Receive Date: 20130605
  Receipt Date: 20130710
  Transmission Date: 20140515
  Serious: Yes (Hospitalization)
  Sender: FDA-Public Use
  Company Number: PHHY2013DE056469

PATIENT
  Age: 79 Year
  Sex: Male
  Weight: 105 kg

DRUGS (2)
  1. EXELON PATCH [Suspect]
     Dosage: 4.6 MG, DAILY
     Route: 062
     Dates: start: 201010, end: 201304
  2. EXELON PATCH [Suspect]
     Dosage: 9.5 MG, DAILY
     Route: 062
     Dates: start: 201304

REACTIONS (5)
  - Coagulopathy [Not Recovered/Not Resolved]
  - Haemoptysis [Not Recovered/Not Resolved]
  - Fall [Not Recovered/Not Resolved]
  - Dementia [Not Recovered/Not Resolved]
  - Incontinence [Not Recovered/Not Resolved]
